FAERS Safety Report 13419035 (Version 2)
Quarter: 2017Q4

REPORT INFORMATION
  Report Type: Spontaneous
  Country: US (occurrence: US)
  Receive Date: 20170407
  Receipt Date: 20171123
  Transmission Date: 20180320
  Serious: No
  Sender: FDA-Public Use
  Company Number: US-JNJFOC-20170320681

PATIENT
  Age: 23 Year
  Sex: Male

DRUGS (52)
  1. RISPERDAL [Suspect]
     Active Substance: RISPERIDONE
     Indication: SCHIZOPHRENIA
     Dosage: VARYING DOSES OF 01 AND 03 MG
     Route: 048
     Dates: start: 20060105, end: 20060116
  2. RISPERDAL [Suspect]
     Active Substance: RISPERIDONE
     Indication: SCHIZOPHRENIA
     Route: 048
     Dates: start: 20130426, end: 20130529
  3. RISPERDAL [Suspect]
     Active Substance: RISPERIDONE
     Indication: SCHIZOPHRENIA
     Route: 048
     Dates: start: 20090824, end: 20091102
  4. RISPERDAL [Suspect]
     Active Substance: RISPERIDONE
     Indication: SCHIZOPHRENIA
     Route: 048
     Dates: start: 20080519, end: 20090406
  5. RISPERDAL [Suspect]
     Active Substance: RISPERIDONE
     Indication: BIPOLAR DISORDER
     Route: 048
     Dates: start: 20061204, end: 20071113
  6. RISPERDAL [Suspect]
     Active Substance: RISPERIDONE
     Indication: BIPOLAR DISORDER
     Route: 048
     Dates: start: 20120507, end: 20120726
  7. RISPERDAL M-TAB [Suspect]
     Active Substance: RISPERIDONE
     Indication: PSYCHOTIC DISORDER
     Route: 048
     Dates: start: 20061108
  8. RISPERIDONE. [Suspect]
     Active Substance: RISPERIDONE
     Indication: SCHIZOPHRENIA
     Route: 065
     Dates: start: 20060111, end: 20060115
  9. RISPERDAL [Suspect]
     Active Substance: RISPERIDONE
     Indication: DRUG ABUSE
     Route: 048
     Dates: start: 20080519, end: 20090406
  10. RISPERDAL [Suspect]
     Active Substance: RISPERIDONE
     Indication: SCHIZOPHRENIA
     Route: 048
     Dates: start: 20061204, end: 20071113
  11. RISPERDAL [Suspect]
     Active Substance: RISPERIDONE
     Indication: PSYCHOTIC DISORDER
     Route: 048
     Dates: start: 2007, end: 20071207
  12. RISPERDAL [Suspect]
     Active Substance: RISPERIDONE
     Indication: BIPOLAR DISORDER
     Route: 048
     Dates: start: 20090824, end: 20091102
  13. RISPERDAL M-TAB [Suspect]
     Active Substance: RISPERIDONE
     Indication: SCHIZOPHRENIA
     Route: 048
     Dates: start: 20061108
  14. RISPERIDONE. [Suspect]
     Active Substance: RISPERIDONE
     Indication: DRUG ABUSE
     Dosage: IN VARYING DOSES OF 01, 02, 03, 04, 06 MG
     Route: 065
     Dates: start: 20120908
  15. RISPERIDONE. [Suspect]
     Active Substance: RISPERIDONE
     Indication: SCHIZOPHRENIA
     Dosage: IN VARYING DOSES OF 01, 02, 03, 04, 06 MG
     Route: 065
     Dates: end: 20120324
  16. RISPERIDONE. [Suspect]
     Active Substance: RISPERIDONE
     Indication: BIPOLAR DISORDER
     Dosage: IN VARYING DOSES OF 01, 02, 03, 04, 06 MG
     Route: 065
     Dates: start: 20120908
  17. RISPERIDONE. [Suspect]
     Active Substance: RISPERIDONE
     Indication: SCHIZOPHRENIA
     Route: 048
     Dates: start: 20090615, end: 20100427
  18. RISPERDAL [Suspect]
     Active Substance: RISPERIDONE
     Indication: DRUG ABUSE
     Route: 048
     Dates: start: 20061204, end: 20071113
  19. RISPERDAL [Suspect]
     Active Substance: RISPERIDONE
     Indication: DRUG ABUSE
     Dosage: VARYING DOSES OF 01 AND 03 MG
     Route: 048
     Dates: start: 20060105, end: 20060116
  20. RISPERDAL [Suspect]
     Active Substance: RISPERIDONE
     Indication: SCHIZOPHRENIA
     Route: 048
     Dates: start: 2007, end: 20071207
  21. RISPERDAL [Suspect]
     Active Substance: RISPERIDONE
     Indication: PSYCHOTIC DISORDER
     Route: 048
     Dates: start: 20080519, end: 20090406
  22. RISPERIDONE. [Suspect]
     Active Substance: RISPERIDONE
     Indication: BIPOLAR DISORDER
     Dosage: IN VARYING DOSES OF 01, 02, 03, 04, 06 MG
     Route: 065
     Dates: end: 20120324
  23. RISPERDAL [Suspect]
     Active Substance: RISPERIDONE
     Indication: BIPOLAR DISORDER
     Route: 048
     Dates: start: 20080519, end: 20090406
  24. RISPERIDONE. [Suspect]
     Active Substance: RISPERIDONE
     Indication: DRUG ABUSE
     Route: 065
     Dates: start: 20060111, end: 20060115
  25. RISPERIDONE. [Suspect]
     Active Substance: RISPERIDONE
     Indication: SCHIZOPHRENIA
     Dosage: IN VARYING DOSES OF 01, 02, 03, 04, 06 MG
     Route: 065
     Dates: start: 20120908
  26. RISPERIDONE. [Suspect]
     Active Substance: RISPERIDONE
     Indication: PSYCHOTIC DISORDER
     Route: 065
     Dates: start: 20060111, end: 20060115
  27. RISPERIDONE. [Suspect]
     Active Substance: RISPERIDONE
     Indication: PSYCHOTIC DISORDER
     Route: 048
     Dates: start: 20090615, end: 20100427
  28. RISPERDAL [Suspect]
     Active Substance: RISPERIDONE
     Indication: DRUG ABUSE
     Route: 048
     Dates: start: 20090824, end: 20091102
  29. RISPERDAL [Suspect]
     Active Substance: RISPERIDONE
     Indication: SCHIZOPHRENIA
     Route: 048
     Dates: start: 20120507, end: 20120726
  30. RISPERDAL [Suspect]
     Active Substance: RISPERIDONE
     Indication: PSYCHOTIC DISORDER
     Route: 048
     Dates: start: 20090824, end: 20091102
  31. RISPERDAL [Suspect]
     Active Substance: RISPERIDONE
     Indication: PSYCHOTIC DISORDER
     Route: 048
     Dates: start: 20130426, end: 20130529
  32. RISPERIDONE. [Suspect]
     Active Substance: RISPERIDONE
     Indication: BIPOLAR DISORDER
     Route: 065
     Dates: start: 20060111, end: 20060115
  33. RISPERIDONE. [Suspect]
     Active Substance: RISPERIDONE
     Indication: DRUG ABUSE
     Route: 048
     Dates: start: 20090615, end: 20100427
  34. RISPERIDONE. [Suspect]
     Active Substance: RISPERIDONE
     Indication: PSYCHOTIC DISORDER
     Route: 048
     Dates: start: 20110330, end: 20120116
  35. RISPERIDONE. [Suspect]
     Active Substance: RISPERIDONE
     Indication: BIPOLAR DISORDER
     Route: 048
     Dates: start: 20110330, end: 20120116
  36. RISPERDAL [Suspect]
     Active Substance: RISPERIDONE
     Indication: DRUG ABUSE
     Route: 048
     Dates: start: 20130426, end: 20130529
  37. RISPERDAL [Suspect]
     Active Substance: RISPERIDONE
     Indication: BIPOLAR DISORDER
     Dosage: VARYING DOSES OF 01 AND 03 MG
     Route: 048
     Dates: start: 20060105, end: 20060116
  38. RISPERDAL [Suspect]
     Active Substance: RISPERIDONE
     Indication: BIPOLAR DISORDER
     Route: 048
     Dates: start: 20130426, end: 20130529
  39. RISPERDAL M-TAB [Suspect]
     Active Substance: RISPERIDONE
     Indication: BIPOLAR DISORDER
     Route: 048
     Dates: start: 20061108
  40. RISPERIDONE. [Suspect]
     Active Substance: RISPERIDONE
     Indication: DRUG ABUSE
     Dosage: IN VARYING DOSES OF 01, 02, 03, 04, 06 MG
     Route: 065
     Dates: end: 20120324
  41. RISPERIDONE. [Suspect]
     Active Substance: RISPERIDONE
     Indication: PSYCHOTIC DISORDER
     Dosage: IN VARYING DOSES OF 01, 02, 03, 04, 06 MG
     Route: 065
     Dates: start: 20120908
  42. RISPERIDONE. [Suspect]
     Active Substance: RISPERIDONE
     Indication: SCHIZOPHRENIA
     Route: 048
     Dates: start: 20110330, end: 20120116
  43. RISPERDAL [Suspect]
     Active Substance: RISPERIDONE
     Indication: DRUG ABUSE
     Route: 048
     Dates: start: 20120507, end: 20120726
  44. RISPERDAL [Suspect]
     Active Substance: RISPERIDONE
     Indication: PSYCHOTIC DISORDER
     Route: 048
     Dates: start: 20120507, end: 20120726
  45. RISPERDAL [Suspect]
     Active Substance: RISPERIDONE
     Indication: BIPOLAR DISORDER
     Route: 048
     Dates: start: 2007, end: 20071207
  46. RISPERIDONE. [Suspect]
     Active Substance: RISPERIDONE
     Indication: PSYCHOTIC DISORDER
     Dosage: IN VARYING DOSES OF 01, 02, 03, 04, 06 MG
     Route: 065
     Dates: end: 20120324
  47. RISPERIDONE. [Suspect]
     Active Substance: RISPERIDONE
     Indication: DRUG ABUSE
     Route: 048
     Dates: start: 20110330, end: 20120116
  48. RISPERIDONE. [Suspect]
     Active Substance: RISPERIDONE
     Indication: BIPOLAR DISORDER
     Route: 048
     Dates: start: 20090615, end: 20100427
  49. RISPERDAL [Suspect]
     Active Substance: RISPERIDONE
     Indication: DRUG ABUSE
     Route: 048
     Dates: start: 2007, end: 20071207
  50. RISPERDAL [Suspect]
     Active Substance: RISPERIDONE
     Indication: PSYCHOTIC DISORDER
     Route: 048
     Dates: start: 20061204, end: 20071113
  51. RISPERDAL [Suspect]
     Active Substance: RISPERIDONE
     Indication: PSYCHOTIC DISORDER
     Dosage: VARYING DOSES OF 01 AND 03 MG
     Route: 048
     Dates: start: 20060105, end: 20060116
  52. RISPERDAL M-TAB [Suspect]
     Active Substance: RISPERIDONE
     Indication: DRUG ABUSE
     Route: 048
     Dates: start: 20061108

REACTIONS (4)
  - Emotional disorder [Unknown]
  - Sedation [Unknown]
  - Treatment noncompliance [Unknown]
  - Gynaecomastia [Unknown]

NARRATIVE: CASE EVENT DATE: 20081119
